FAERS Safety Report 6377635-2 (Version None)
Quarter: 2009Q3

REPORT INFORMATION
  Report Type: 
  Country: None (occurrence: None)
  Receive Date: 20090925
  Receipt Date: 20090908
  Transmission Date: 20100115
  Serious: Yes (Hospitalization, Other)
  Sender: FDA-Public Use
  Company Number: CHPA2009US18392

PATIENT
  Age: 62 Year
  Sex: Female

DRUGS (2)
  1. EXCEDRIN EXTRA STRENGTH (NCH) [Suspect]
     Indication: HEADACHE
     Dosage: 3 DF, BID
     Route: 048
  2. EXCEDRIN EXTRA STRENGTH (NCH) [Suspect]
     Dosage: 3 DF, BID
     Route: 048

REACTIONS (11)
  - APPETITE DISORDER [None]
  - BIPOLAR DISORDER [None]
  - GASTROINTESTINAL DISORDER [None]
  - GRAND MAL CONVULSION [None]
  - INCORRECT DOSE ADMINISTERED [None]
  - INTENTIONAL DRUG MISUSE [None]
  - PANIC ATTACK [None]
  - PETIT MAL EPILEPSY [None]
  - PNEUMONIA [None]
  - SCIATICA [None]
  - WEIGHT DECREASED [None]
